FAERS Safety Report 6175950-9 (Version None)
Quarter: 2009Q2

REPORT INFORMATION
  Report Type: 
  Country: None (occurrence: None)
  Receive Date: 20090501
  Receipt Date: 20080403
  Transmission Date: 20091009
  Serious: Yes (Hospitalization)
  Sender: FDA-Public Use
  Company Number: US-ALEXION-A200700051

PATIENT

DRUGS (17)
  1. SOLIRIS [Suspect]
     Indication: PAROXYSMAL NOCTURNAL HAEMOGLOBINURIA
     Dosage: 900 MG, SINGLE
     Route: 042
     Dates: start: 20070521, end: 20070521
  2. SOLIRIS [Suspect]
     Dosage: 900 MG, SINGLE
     Route: 042
     Dates: start: 20070601, end: 20070601
  3. SOLIRIS [Suspect]
     Dosage: 900 MG, SINGLE
     Route: 042
     Dates: start: 20070618, end: 20070618
  4. SOLIRIS [Suspect]
     Dosage: 900 MG, SINGLE
     Route: 042
     Dates: start: 20070703, end: 20070703
  5. SOLIRIS [Suspect]
     Dosage: 900 MG, SINGLE
     Route: 042
     Dates: start: 20070716, end: 20070716
  6. SOLIRIS [Suspect]
     Dosage: 900 MG, SINGLE
     Route: 042
     Dates: start: 20070801, end: 20070801
  7. SOLIRIS [Suspect]
     Dosage: 900 MG, SINGLE
     Route: 042
     Dates: start: 20070815, end: 20070815
  8. SOLIRIS [Suspect]
     Dosage: 900 MG, SINGLE
     Route: 042
     Dates: start: 20070829, end: 20070829
  9. SOLIRIS [Suspect]
     Dosage: 900 MG, SINGLE
     Route: 042
     Dates: start: 20070912, end: 20070912
  10. SOLIRIS [Suspect]
     Dosage: 900 MG, SINGLE
     Route: 042
     Dates: start: 20080227, end: 20080227
  11. SOLIRIS [Suspect]
     Dosage: 900 MG, SINGLE
     Route: 042
     Dates: start: 20080312, end: 20080312
  12. SOLIRIS [Suspect]
     Dosage: 900 MG, SINGLE
     Route: 042
     Dates: start: 20080326, end: 20080326
  13. COUMADIN [Concomitant]
     Dates: end: 20070822
  14. COUMADIN [Concomitant]
     Dates: start: 20070827
  15. FOLIC ACID [Concomitant]
  16. MULTIVITAMIN /00831701/ [Concomitant]
  17. VITAMIN B12 /00056201/ [Concomitant]
     Dosage: UNK, UNK

REACTIONS (6)
  - CHILLS [None]
  - COUGH [None]
  - HAEMOGLOBIN DECREASED [None]
  - NASAL CONGESTION [None]
  - PNEUMONIA [None]
  - PYREXIA [None]
